FAERS Safety Report 13131937 (Version 4)
Quarter: 2017Q1

REPORT INFORMATION
  Report Type: Spontaneous
  Country: US (occurrence: US)
  Receive Date: 20170119
  Receipt Date: 20170320
  Transmission Date: 20170428
  Serious: Yes (Other)
  Sender: FDA-Public Use
  Company Number: US-SA-2017SA006102

PATIENT
  Age: 79 Year
  Sex: Female
  Weight: 63.5 kg

DRUGS (21)
  1. ALBUTEROL. [Concomitant]
     Active Substance: ALBUTEROL
     Route: 055
  2. VALACICLOVIR HYDROCHLORIDE [Concomitant]
     Active Substance: VALACYCLOVIR HYDROCHLORIDE
     Dates: end: 20170129
  3. CRESTOR [Concomitant]
     Active Substance: ROSUVASTATIN CALCIUM
  4. METOPROLOL. [Concomitant]
     Active Substance: METOPROLOL
  5. PRIMIDONE. [Concomitant]
     Active Substance: PRIMIDONE
  6. RECLAST [Concomitant]
     Active Substance: ZOLEDRONIC ACID
     Dosage: EVERY YEAR
     Dates: start: 20160329
  7. SYMBICORT [Concomitant]
     Active Substance: BUDESONIDE\FORMOTEROL FUMARATE DIHYDRATE
     Dosage: 80/4.5  2 INHALATIONS MORNING AND EVENING AS NEEDED
     Route: 055
  8. MOTRIN [Concomitant]
     Active Substance: IBUPROFEN
     Dosage: 800 MG BID AS NEEDED
  9. SIMBRINZA [Concomitant]
     Active Substance: BRIMONIDINE TARTRATE\BRINZOLAMIDE
     Dosage: LEFT EYE
  10. SINGULAIR [Concomitant]
     Active Substance: MONTELUKAST SODIUM
  11. NIACIN. [Concomitant]
     Active Substance: NIACIN
     Indication: BLOOD CHOLESTEROL
  12. PRALUENT [Suspect]
     Active Substance: ALIROCUMAB
     Indication: HYPERCHOLESTEROLAEMIA
     Route: 058
     Dates: start: 20160809
  13. ALIROCUMAB PREFILLED PEN [Suspect]
     Active Substance: ALIROCUMAB
     Indication: HYPERCHOLESTEROLAEMIA
     Dates: start: 20160809
  14. LEVOTHYROXINE SODIUM. [Concomitant]
     Active Substance: LEVOTHYROXINE SODIUM
  15. FLUTICASONE. [Concomitant]
     Active Substance: FLUTICASONE
     Dosage: NASAL SPRAY
  16. PREDNISOLONE ACETATE. [Concomitant]
     Active Substance: PREDNISOLONE ACETATE
  17. HYDROCHLOROTHIAZIDE/LOSARTAN [Concomitant]
     Dosage: 50-12.5 MG
  18. ASPIRIN. [Concomitant]
     Active Substance: ASPIRIN
  19. FUROSEMIDE. [Concomitant]
     Active Substance: FUROSEMIDE
     Dosage: 40 MG
  20. LORATADINE. [Concomitant]
     Active Substance: LORATADINE
  21. DUREZOL [Concomitant]
     Active Substance: DIFLUPREDNATE
     Dates: end: 20170122

REACTIONS (3)
  - Device use issue [Unknown]
  - Blindness unilateral [Unknown]
  - Injection site bruising [Recovered/Resolved]

NARRATIVE: CASE EVENT DATE: 20161227
